FAERS Safety Report 8310493-5 (Version None)
Quarter: 2012Q2

REPORT INFORMATION
  Report Type: 
  Country: None (occurrence: None)
  Receive Date: 20120425
  Receipt Date: 20120423
  Transmission Date: 20120825
  Serious: Yes (Hospitalization)
  Sender: FDA-Public Use
  Company Number: ZA-ROCHE-1059529

PATIENT
  Sex: Female

DRUGS (6)
  1. OXALIPLATIN [Concomitant]
     Indication: COLORECTAL CANCER
  2. PREXUM PLUS [Concomitant]
  3. METFORMIN HCL [Concomitant]
  4. CRESTOR [Concomitant]
  5. XELODA [Suspect]
     Indication: PRODUCT USED FOR UNKNOWN INDICATION
     Dosage: D1-D14
     Route: 048
     Dates: start: 20120224, end: 20120306
  6. ZILDEM [Concomitant]

REACTIONS (5)
  - DIARRHOEA [None]
  - DERMATITIS [None]
  - PALMAR-PLANTAR ERYTHRODYSAESTHESIA SYNDROME [None]
  - MUCOSAL INFLAMMATION [None]
  - CONJUNCTIVITIS [None]
